FAERS Safety Report 4432350-7 (Version None)
Quarter: 2004Q3

REPORT INFORMATION
  Report Type: 
  Country: None (occurrence: None)
  Receive Date: 20040825
  Receipt Date: 20040818
  Transmission Date: 20050211
  Serious: Yes (Death, Hospitalization, Other)
  Sender: FDA-Public Use
  Company Number: JP-BRISTOL-MYERS SQUIBB COMPANY-12676359

PATIENT
  Age: 50 Year
  Sex: Female

DRUGS (3)
  1. STOCRIN [Suspect]
     Indication: HIV INFECTION
     Route: 048
  2. VIDEX EC [Suspect]
     Indication: HIV INFECTION
     Route: 048
  3. RETROVIR [Suspect]
     Indication: HIV INFECTION
     Route: 048

REACTIONS (3)
  - ASCITES [None]
  - HEPATIC ENCEPHALOPATHY [None]
  - HEPATIC FAILURE [None]
